FAERS Safety Report 11219771 (Version 1)
Quarter: 2015Q2

REPORT INFORMATION
  Report Type: Spontaneous
  Country: US (occurrence: None)
  Receive Date: 20150624
  Receipt Date: 20150624
  Transmission Date: 20150821
  Serious: Yes (Disabling)
  Sender: FDA-Public Use
  Company Number: None

PATIENT
  Age: 32 Year
  Sex: Female
  Weight: 128.37 kg

DRUGS (3)
  1. PREDNISONE. [Concomitant]
     Active Substance: PREDNISONE
  2. FEMARA [Suspect]
     Active Substance: LETROZOLE
     Indication: OVULATION DISORDER
     Dosage: 1 PILL  ONCE DAILY TAKEN BY MOUTH
     Route: 048
     Dates: start: 20130909, end: 20150525
  3. ALLPURINAL [Concomitant]

REACTIONS (3)
  - Gout [None]
  - Ovarian hyperstimulation syndrome [None]
  - Ovarian cyst [None]

NARRATIVE: CASE EVENT DATE: 20150622
